FAERS Safety Report 8428323-X (Version None)
Quarter: 2012Q2

REPORT INFORMATION
  Report Type: 
  Country: None (occurrence: None)
  Receive Date: 20120611
  Receipt Date: 20120604
  Transmission Date: 20120825
  Serious: Yes (Hospitalization, Other)
  Sender: FDA-Public Use
  Company Number: US-TEVA-342267USA

PATIENT
  Sex: Male
  Weight: 76.1 kg

DRUGS (12)
  1. POTASSIUM [Concomitant]
     Dosage: 10 MILLIEQUIVALENTS;
     Route: 048
  2. MULTI-VITAMIN [Concomitant]
  3. IMMUNE GLOBULIN INTRAVENOUS (HUMAN) [Concomitant]
  4. TREANDA [Suspect]
     Indication: ACUTE MYELOID LEUKAEMIA
     Route: 042
     Dates: start: 20120404, end: 20120405
  5. DILTIAZEM [Concomitant]
     Dosage: 120 MILLIGRAM;
  6. RANITIDINE HCL [Concomitant]
  7. VICODIN [Concomitant]
     Indication: PAIN
     Dosage: 5/325MG PO Q4-6 HRS
  8. EPOGEN [Concomitant]
     Dosage: 40,000 UNITS, WEEKLY
     Route: 058
  9. FUROSEMIDE [Concomitant]
     Dosage: BID
     Route: 048
  10. IDARUBICIN HCL [Suspect]
     Indication: ACUTE MYELOID LEUKAEMIA
     Route: 042
     Dates: start: 20120404
  11. AMIODARONE HCL [Concomitant]
     Dosage: 200 MILLIGRAM;
     Route: 048
  12. MAGNESIUM [Concomitant]
     Dosage: 500 MILLIGRAM;
     Route: 048

REACTIONS (1)
  - RENAL FAILURE ACUTE [None]
